FAERS Safety Report 7347236-8 (Version None)
Quarter: 2011Q1

REPORT INFORMATION
  Report Type: 
  Country: None (occurrence: None)
  Receive Date: 20110311
  Receipt Date: 20110302
  Transmission Date: 20110831
  Serious: Yes (Hospitalization)
  Sender: FDA-Public Use
  Company Number: AU-ELI_LILLY_AND_COMPANY-AU201102000002

PATIENT
  Age: 26 Year
  Sex: Female

DRUGS (7)
  1. ZYPREXA [Suspect]
     Indication: PSYCHOTIC DISORDER
     Dosage: 10 MG, UNK
     Dates: start: 20030101
  2. ZYPREXA [Suspect]
     Dosage: 1.5 D/F, UNK
  3. LITHIUM CARBONATE [Concomitant]
  4. FLUPENTHIXOL [Concomitant]
  5. ZYPREXA [Suspect]
     Dosage: 20 MG, UNK
  6. ZYPREXA [Suspect]
     Dosage: 25 MG, UNK
  7. ZYPREXA [Suspect]
     Dosage: 30 MG, UNK

REACTIONS (9)
  - ANGER [None]
  - HOSPITALISATION [None]
  - ABNORMAL BEHAVIOUR [None]
  - AGITATION [None]
  - SPEECH DISORDER [None]
  - HALLUCINATION, VISUAL [None]
  - DRUG WITHDRAWAL SYNDROME [None]
  - INTENTIONAL DRUG MISUSE [None]
  - OVERDOSE [None]
